FAERS Safety Report 7284980-5 (Version None)
Quarter: 2011Q1

REPORT INFORMATION
  Report Type: 
  Country: None (occurrence: None)
  Receive Date: 20110210
  Receipt Date: 20110118
  Transmission Date: 20110831
  Serious: No
  Sender: FDA-Public Use
  Company Number: GB-BAYER-2011-007591

PATIENT
  Sex: Female

DRUGS (2)
  1. MIRENA [Suspect]
     Dosage: 20 MCG/24HR, CONT
     Route: 015
  2. MIRENA [Suspect]
     Indication: HORMONE REPLACEMENT THERAPY
     Dosage: 20 MCG/24HR, CONT
     Route: 015

REACTIONS (5)
  - CERVIX DISORDER [None]
  - GENITAL INFECTION FEMALE [None]
  - VAGINAL DISCHARGE [None]
  - COMPLICATION OF DEVICE REMOVAL [None]
  - COMPLICATION OF DEVICE INSERTION [None]
